FAERS Safety Report 5351444-5 (Version None)
Quarter: 2007Q2

REPORT INFORMATION
  Report Type: 
  Country: None (occurrence: None)
  Receive Date: 20070521
  Receipt Date: 20070314
  Transmission Date: 20071010
  Serious: No
  Sender: FDA-Public Use
  Company Number: WAES 0704USA00649

PATIENT
  Age: 66 Year
  Sex: Male

DRUGS (6)
  1. JANUVIA [Suspect]
     Indication: DIABETES MELLITUS NON-INSULIN-DEPENDENT
     Dosage: PO
     Route: 048
     Dates: start: 20070213, end: 20070306
  2. AVANDAMET [Concomitant]
  3. CRESTOR [Concomitant]
  4. LANOXIN [Concomitant]
  5. LOTREL [Concomitant]
  6. NEXIUM [Concomitant]

REACTIONS (2)
  - HEADACHE [None]
  - UPPER RESPIRATORY TRACT INFECTION [None]
